FAERS Safety Report 8592525-2 (Version None)
Quarter: 2012Q3

REPORT INFORMATION
  Report Type: 
  Country: None (occurrence: None)
  Receive Date: 20120814
  Receipt Date: 20120810
  Transmission Date: 20120928
  Serious: Yes (Other)
  Sender: FDA-Public Use
  Company Number: PHEH2012US014381

PATIENT
  Sex: Female
  Weight: 40 kg

DRUGS (4)
  1. PREDNISONE TAB [Concomitant]
     Route: 048
  2. ILARIS [Suspect]
     Indication: MEVALONATE KINASE DEFICIENCY
     Route: 058
     Dates: start: 20120401
  3. TYLENOL [Concomitant]
  4. COENZYME Q10 [Concomitant]
     Dosage: 60 MG, DAILY

REACTIONS (3)
  - VERTIGO [None]
  - LOSS OF CONSCIOUSNESS [None]
  - DIZZINESS [None]
